FAERS Safety Report 6073197-8 (Version None)
Quarter: 2009Q1

REPORT INFORMATION
  Report Type: 
  Country: None (occurrence: None)
  Receive Date: 20090205
  Receipt Date: 20090119
  Transmission Date: 20090719
  Serious: Yes (Disabling)
  Sender: FDA-Public Use
  Company Number: 2009S1001007

PATIENT
  Age: 80 Year
  Sex: Female

DRUGS (1)
  1. PRAVASTATIN [Suspect]
     Indication: HYPERCHOLESTEROLAEMIA

REACTIONS (7)
  - DERMATITIS PSORIASIFORM [None]
  - DRUG ERUPTION [None]
  - LYMPHOCYTE STIMULATION TEST POSITIVE [None]
  - PSORIASIS [None]
  - PYREXIA [None]
  - RASH PAPULOSQUAMOUS [None]
  - SKIN EXFOLIATION [None]
